FAERS Safety Report 4794270-8 (Version None)
Quarter: 2005Q4

REPORT INFORMATION
  Report Type: 
  Country: None (occurrence: None)
  Receive Date: 20051011
  Receipt Date: 20050719
  Transmission Date: 20060501
  Serious: Yes (Hospitalization)
  Sender: FDA-Public Use
  Company Number: JP-GLAXOSMITHKLINE-B0388425A

PATIENT
  Sex: Male
  Weight: 3 kg

DRUGS (7)
  1. PAXIL [Suspect]
     Dosage: 20MG PER DAY
     Dates: start: 20021201, end: 20050717
  2. DEPAS [Suspect]
     Dosage: .5MG THREE TIMES PER DAY
     Dates: start: 20050701
  3. ALPRAZOLAM [Suspect]
     Dosage: .4MG THREE TIMES PER DAY
     Dates: start: 20050701
  4. PAXIL [Suspect]
     Dates: start: 20050718
  5. ETISEDAN [Concomitant]
     Dosage: 1.5MG PER DAY
     Dates: start: 20021201, end: 20050701
  6. SOLANAX [Concomitant]
     Dosage: 1.2MG PER DAY
     Dates: start: 20021201, end: 20050701
  7. LOXOPROFEN SODIUM [Concomitant]

REACTIONS (8)
  - CARDIAC MURMUR [None]
  - DRUG EXPOSURE DURING PREGNANCY [None]
  - DRUG WITHDRAWAL SYNDROME NEONATAL [None]
  - IRRITABILITY [None]
  - NAUSEA [None]
  - OXYGEN SATURATION DECREASED [None]
  - PERSISTENT FOETAL CIRCULATION [None]
  - TREMOR [None]
